FAERS Safety Report 8459538-2 (Version None)
Quarter: 2012Q2

REPORT INFORMATION
  Report Type: 
  Country: None (occurrence: None)
  Receive Date: 20120622
  Receipt Date: 20120613
  Transmission Date: 20120825
  Serious: Yes (Hospitalization)
  Sender: FDA-Public Use
  Company Number: FR-PFIZER INC-2012143032

PATIENT
  Age: 60 Year
  Sex: Female

DRUGS (10)
  1. IMIPENEM AND CILASTATIN SODIUM [Suspect]
     Dosage: UNK
     Route: 042
     Dates: start: 20120131, end: 20120203
  2. FUROSEMIDE [Suspect]
     Dosage: UNK
     Route: 042
     Dates: start: 20120109, end: 20120122
  3. NEXIUM [Suspect]
     Dosage: UNK
     Dates: start: 20120120, end: 20120208
  4. VANCOMYCIN [Suspect]
     Dosage: UNK
     Route: 042
     Dates: start: 20120119, end: 20120126
  5. IMIPENEM AND CILASTATIN SODIUM [Suspect]
     Dosage: UNK
     Route: 042
     Dates: start: 20120121, end: 20120126
  6. TAZOBACTAM [Suspect]
     Dosage: UNK
     Route: 042
     Dates: start: 20120115, end: 20120121
  7. PANTOPRAZOLE [Suspect]
     Dosage: UNK
     Dates: start: 20120109, end: 20120117
  8. AMIKACIN [Suspect]
     Dosage: UNK
     Route: 042
     Dates: start: 20120119, end: 20120125
  9. CORDARONE [Suspect]
     Dosage: 150 MG, UNK
     Route: 042
     Dates: start: 20120117, end: 20120129
  10. IOMERON-150 [Suspect]
     Dosage: UNK
     Route: 042
     Dates: start: 20120131, end: 20120131

REACTIONS (1)
  - DRUG RASH WITH EOSINOPHILIA AND SYSTEMIC SYMPTOMS [None]
